FAERS Safety Report 16642136 (Version 3)
Quarter: 2020Q2

REPORT INFORMATION
  Report Type: Spontaneous
  Country: US (occurrence: US)
  Receive Date: 20190729
  Receipt Date: 20200629
  Transmission Date: 20200713
  Serious: Yes (Death, Life-Threatening, Hospitalization, Other)
  Sender: FDA-Public Use
  Company Number: US-SA-2019SA201108

PATIENT

DRUGS (27)
  1. PREDNISONE. [Suspect]
     Active Substance: PREDNISONE
     Dosage: INCREASED DOSAGES
  2. CEFEPIME HYDROCHLORIDE. [Suspect]
     Active Substance: CEFEPIME HYDROCHLORIDE
  3. PREDNISONE. [Suspect]
     Active Substance: PREDNISONE
     Indication: GRAFT VERSUS HOST DISEASE IN LIVER
     Dosage: INCREASED DOSAGE
  4. PREDNISONE. [Suspect]
     Active Substance: PREDNISONE
     Dosage: LOW MAINTENANCE DOSAGES
  5. TACROLIMUS. [Suspect]
     Active Substance: TACROLIMUS
     Indication: PROPHYLAXIS AGAINST GRAFT VERSUS HOST DISEASE
     Dosage: UNK
  6. POSACONAZOLE [Concomitant]
     Active Substance: POSACONAZOLE
     Indication: PROPHYLAXIS
  7. PREDNISONE. [Suspect]
     Active Substance: PREDNISONE
     Indication: PROPHYLAXIS AGAINST GRAFT VERSUS HOST DISEASE
     Dosage: UNK
  8. PREDNISONE. [Suspect]
     Active Substance: PREDNISONE
     Dosage: HIGHER DOSAGE
  9. FLUDARABINE PHOSPHATE. [Suspect]
     Active Substance: FLUDARABINE PHOSPHATE
     Indication: BONE MARROW CONDITIONING REGIMEN
     Dosage: UNK, QCY
  10. BUSULFAN. [Suspect]
     Active Substance: BUSULFAN
     Indication: BONE MARROW CONDITIONING REGIMEN
     Dosage: UNK UNK, QCY
  11. TACROLIMUS. [Suspect]
     Active Substance: TACROLIMUS
     Indication: GRAFT VERSUS HOST DISEASE IN LIVER
     Dosage: LOW MAINTENANCE DOSE
  12. POSACONAZOLE [Concomitant]
     Active Substance: POSACONAZOLE
  13. TRIMETHOPRIM SULFAMETHOXAZOLE [Concomitant]
     Active Substance: SULFAMETHOXAZOLE\TRIMETHOPRIM
     Dosage: RESTARTED
  14. PREDNISONE. [Suspect]
     Active Substance: PREDNISONE
     Indication: GRAFT VERSUS HOST DISEASE IN SKIN
     Dosage: LOW MAINTENANCE DOSE
  15. TACROLIMUS. [Suspect]
     Active Substance: TACROLIMUS
     Indication: PROPHYLAXIS AGAINST GRAFT VERSUS HOST DISEASE
     Dosage: LOW MAINTENANCE DOSAGES
  16. POSACONAZOLE [Concomitant]
     Active Substance: POSACONAZOLE
     Dosage: RESTARTED
  17. MYCOPHENOLATE MOFETIL. [Suspect]
     Active Substance: MYCOPHENOLATE MOFETIL
     Indication: GRAFT VERSUS HOST DISEASE IN LIVER
     Dosage: UNK
  18. TACROLIMUS. [Suspect]
     Active Substance: TACROLIMUS
     Indication: GRAFT VERSUS HOST DISEASE IN SKIN
  19. ACYCLOVIR [ACICLOVIR] [Suspect]
     Active Substance: ACYCLOVIR
     Dosage: HIGH DOSE
     Route: 042
  20. GANCICLOVIR. [Concomitant]
     Active Substance: GANCICLOVIR
     Indication: PROPHYLAXIS
  21. PREDNISONE. [Suspect]
     Active Substance: PREDNISONE
     Indication: GRAFT VERSUS HOST DISEASE IN LIVER
     Dosage: 30 MG, QD, HIGHER DOSAGE
  22. IMMUNOGLOBULIN [IMMUNOGLOBULINS NOS] [Suspect]
     Active Substance: IMMUNE GLOBULIN NOS
     Route: 042
  23. ANTI-THYMOCYTE GLOBULIN (RABBIT) NOS [Suspect]
     Active Substance: LAPINE T-LYMPHOCYTE IMMUNE GLOBULIN
     Indication: BONE MARROW CONDITIONING REGIMEN
  24. GANCICLOVIR. [Concomitant]
     Active Substance: GANCICLOVIR
  25. TRIMETHOPRIM SULFAMETHOXAZOLE [Concomitant]
     Active Substance: SULFAMETHOXAZOLE\TRIMETHOPRIM
     Indication: PROPHYLAXIS
  26. PREDNISONE. [Suspect]
     Active Substance: PREDNISONE
     Indication: PROPHYLAXIS AGAINST GRAFT VERSUS HOST DISEASE
  27. VANCOMYCIN [Suspect]
     Active Substance: VANCOMYCIN

REACTIONS (24)
  - Encephalitis protozoal [Fatal]
  - Somnolence [Fatal]
  - Pyrexia [Fatal]
  - Neurological decompensation [Fatal]
  - Rash macular [Recovered/Resolved]
  - Disorientation [Fatal]
  - Hypotension [Unknown]
  - Renal failure [Unknown]
  - Ataxia [Fatal]
  - Brain oedema [Fatal]
  - Corneal reflex decreased [Fatal]
  - Pupil fixed [Fatal]
  - Lethargy [Fatal]
  - Aspiration [Unknown]
  - Unresponsive to stimuli [Fatal]
  - Respiratory distress [Unknown]
  - Atrial fibrillation [Unknown]
  - Acanthamoeba infection [Fatal]
  - Brain herniation [Fatal]
  - Pneumonia [Recovered/Resolved]
  - Headache [Fatal]
  - Brain compression [Fatal]
  - Cerebral haemorrhage [Fatal]
  - Rash erythematous [Recovered/Resolved]
